FAERS Safety Report 15367650 (Version 1)
Quarter: 2018Q3

REPORT INFORMATION
  Report Type: Spontaneous
  Country: US (occurrence: US)
  Receive Date: 20180904
  Receipt Date: 20180904
  Transmission Date: 20181010
  Serious: Yes (Life-Threatening, Hospitalization)
  Sender: FDA-Public Use
  Company Number: None

PATIENT
  Age: 68 Year
  Sex: Male

DRUGS (22)
  1. AMIODARONE [Concomitant]
     Active Substance: AMIODARONE
  2. DAPSONE. [Concomitant]
     Active Substance: DAPSONE
  3. DEXAMETHASONE. [Concomitant]
     Active Substance: DEXAMETHASONE
  4. FILGRASTIM [Concomitant]
     Active Substance: FILGRASTIM
  5. METHYLPREDNISOLONE. [Concomitant]
     Active Substance: METHYLPREDNISOLONE
  6. ALLOPURINOL. [Concomitant]
     Active Substance: ALLOPURINOL
  7. FLUCONAZOLE. [Concomitant]
     Active Substance: FLUCONAZOLE
  8. METRONIDAZOLE. [Concomitant]
     Active Substance: METRONIDAZOLE
  9. MIRTAZAPINE. [Concomitant]
     Active Substance: MIRTAZAPINE
  10. YESCARTA [Suspect]
     Active Substance: AXICABTAGENE CILOLEUCEL
     Indication: LYMPHOMA
     Dates: start: 20180612
  11. ELTROMBOPAG [Concomitant]
     Active Substance: ELTROMBOPAG
  12. PIPERACILLIN/TAZOBACTAM [Concomitant]
     Active Substance: PIPERACILLIN SODIUM\TAZOBACTAM SODIUM
  13. FLUDARABINE [Concomitant]
     Active Substance: FLUDARABINE PHOSPHATE
  14. KEPPRA [Concomitant]
     Active Substance: LEVETIRACETAM
  15. CASPOFUNGIN [Concomitant]
     Active Substance: CASPOFUNGIN
  16. CYCLOPHOSPHAMIDE. [Concomitant]
     Active Substance: CYCLOPHOSPHAMIDE
  17. LEVOFLOXACIN. [Concomitant]
     Active Substance: LEVOFLOXACIN
  18. ACYCLOVIR. [Concomitant]
     Active Substance: ACYCLOVIR
  19. OLANZAPINE. [Concomitant]
     Active Substance: OLANZAPINE
  20. ENOXAPARIN [Concomitant]
     Active Substance: ENOXAPARIN
  21. CEFEPIME [Concomitant]
     Active Substance: CEFEPIME HYDROCHLORIDE
  22. PREDNISONE. [Concomitant]
     Active Substance: PREDNISONE

REACTIONS (10)
  - Vocal cord paresis [None]
  - Cytokine release syndrome [None]
  - Delirium [None]
  - Depression [None]
  - Dysphonia [None]
  - Hyperbilirubinaemia [None]
  - Atrial fibrillation [None]
  - Neurotoxicity [None]
  - Cytopenia [None]
  - Dysphagia [None]
